FAERS Safety Report 13566959 (Version 1)
Quarter: 2017Q2

REPORT INFORMATION
  Report Type: Spontaneous
  Country: US (occurrence: US)
  Receive Date: 20170519
  Receipt Date: 20170519
  Transmission Date: 20170830
  Serious: No
  Sender: FDA-Public Use
  Company Number: None

PATIENT
  Age: 53 Year
  Sex: Male
  Weight: 76.5 kg

DRUGS (4)
  1. PENTASA [Concomitant]
     Active Substance: MESALAMINE
  2. VITAMIN D [Concomitant]
     Active Substance: CHOLECALCIFEROL
  3. BENADRYL [Concomitant]
     Active Substance: DIPHENHYDRAMINE HYDROCHLORIDE
  4. FLUOCINONIDE CREAM USP 0.1% [Suspect]
     Active Substance: FLUOCINONIDE
     Indication: TENDONITIS
     Dosage: ?          QUANTITY:1 G;?
     Route: 061
     Dates: start: 20170422, end: 20170506

REACTIONS (10)
  - Unevaluable event [None]
  - Heart rate increased [None]
  - Eating disorder [None]
  - Feeling hot [None]
  - Thirst [None]
  - Emotional poverty [None]
  - Insomnia [None]
  - Personality change [None]
  - Thinking abnormal [None]
  - Steroid withdrawal syndrome [None]

NARRATIVE: CASE EVENT DATE: 20170508
